FAERS Safety Report 19465966 (Version 2)
Quarter: 2021Q2

REPORT INFORMATION
  Report Type: Spontaneous
  Country: TR (occurrence: TR)
  Receive Date: 20210626
  Receipt Date: 20210626
  Transmission Date: 20210717
  Serious: Yes (Death, Hospitalization, Other)
  Sender: FDA-Public Use
  Company Number: TR-LUPIN PHARMACEUTICALS INC.-2021-10319

PATIENT
  Age: 55 Year
  Sex: Female

DRUGS (42)
  1. AZITHROMYCIN ANHYDROUS. [Suspect]
     Active Substance: AZITHROMYCIN ANHYDROUS
     Indication: COVID-19 PNEUMONIA
     Dosage: UNK
     Route: 065
     Dates: start: 202004
  2. NIVOLUMAB [Concomitant]
     Active Substance: NIVOLUMAB
     Indication: HODGKIN^S DISEASE
     Dosage: UNK
     Route: 065
     Dates: start: 201604, end: 201604
  3. IFOSFAMIDE. [Concomitant]
     Active Substance: IFOSFAMIDE
     Indication: SALVAGE THERAPY
  4. METHOTREXATE. [Concomitant]
     Active Substance: METHOTREXATE
     Indication: CHRONIC GRAFT VERSUS HOST DISEASE IN SKIN
  5. BRENTUXIMAB [Concomitant]
     Active Substance: BRENTUXIMAB VEDOTIN
     Indication: HODGKIN^S DISEASE
  6. PIPERACILLIN/TAZOBACTAM [Suspect]
     Active Substance: PIPERACILLIN SODIUM\TAZOBACTAM SODIUM
     Indication: COVID-19
     Dosage: UNK
     Route: 065
     Dates: start: 202004
  7. RITUXIMAB. [Concomitant]
     Active Substance: RITUXIMAB
     Indication: EPSTEIN-BARR VIRAEMIA
     Dosage: UNK
     Route: 065
     Dates: start: 201911, end: 201911
  8. MYCOPHENOLATE MOFETIL. [Concomitant]
     Active Substance: MYCOPHENOLATE MOFETIL
     Indication: PROPHYLAXIS AGAINST GRAFT VERSUS HOST DISEASE
     Dosage: UNK
     Route: 065
     Dates: start: 2018
  9. GEMCITABINE. [Concomitant]
     Active Substance: GEMCITABINE
     Indication: SALVAGE THERAPY
  10. CARMUSTINE. [Concomitant]
     Active Substance: CARMUSTINE
     Indication: BONE MARROW CONDITIONING REGIMEN
     Dosage: UNK (BEAM REGIMEN)
     Route: 065
     Dates: start: 201209, end: 201209
  11. VINBLASTINE [Concomitant]
     Active Substance: VINBLASTINE
     Indication: HODGKIN^S DISEASE
     Dosage: UNK (ABVD REGIMEN)
     Route: 065
     Dates: start: 201102, end: 201102
  12. METHOTREXATE. [Concomitant]
     Active Substance: METHOTREXATE
     Indication: PROPHYLAXIS AGAINST GRAFT VERSUS HOST DISEASE
     Dosage: UNK
     Route: 065
     Dates: start: 2018
  13. MELPHALAN. [Concomitant]
     Active Substance: MELPHALAN
     Indication: BONE MARROW CONDITIONING REGIMEN
     Dosage: UNK (BEAM REGIMEN ; FOR AUTOHCT)
     Route: 065
     Dates: start: 201209, end: 201209
  14. IMMUNOGLOBULIN (IMMUNOGLOBULIN HUMAN NORMAL) [Suspect]
     Active Substance: HUMAN IMMUNOGLOBULIN G
     Indication: IMMUNODEFICIENCY COMMON VARIABLE
     Dosage: 400 MG/KG/DAY PER 3 WEEKS
     Route: 042
  15. DOXORUBICIN [Concomitant]
     Active Substance: DOXORUBICIN
     Indication: HODGKIN^S DISEASE
     Dosage: UNK
     Route: 065
     Dates: start: 201102, end: 201102
  16. EPIRUBICIN [Concomitant]
     Active Substance: EPIRUBICIN
     Indication: HODGKIN^S DISEASE
     Dosage: UNK (IVE REGIMEN AS SALVAGE CHEMOTHERAPY)
     Route: 065
     Dates: start: 201201, end: 201201
  17. MYCOPHENOLATE MOFETIL. [Concomitant]
     Active Substance: MYCOPHENOLATE MOFETIL
     Indication: CHRONIC GRAFT VERSUS HOST DISEASE IN SKIN
  18. CISPLATIN. [Concomitant]
     Active Substance: CISPLATIN
     Indication: PAPILLARY THYROID CANCER
     Dosage: UNK (GDP REGIMEN)
     Route: 065
     Dates: start: 201705, end: 201705
  19. BRENTUXIMAB [Concomitant]
     Active Substance: BRENTUXIMAB VEDOTIN
     Indication: PAPILLARY THYROID CANCER
     Dosage: UNK (SALVAGE CHEMOTHERAPY)
     Route: 065
     Dates: start: 201702, end: 201702
  20. BENDAMUSTINE [Concomitant]
     Active Substance: BENDAMUSTINE
     Indication: PAPILLARY THYROID CANCER
     Dosage: UNK (SALVAGE CHEMOTHERAPY)
     Route: 065
     Dates: start: 201702, end: 201702
  21. IFOSFAMIDE. [Concomitant]
     Active Substance: IFOSFAMIDE
     Indication: HODGKIN^S DISEASE
     Dosage: UNK I(IVE REGIMEN AS SALVAGE CHEMOTHERAPY)
     Route: 065
     Dates: start: 201201, end: 201201
  22. FLUDARABINE [Concomitant]
     Active Substance: FLUDARABINE PHOSPHATE
     Indication: BONE MARROW CONDITIONING REGIMEN
     Dosage: UNK
     Route: 065
     Dates: start: 201803, end: 201803
  23. ETOPOSIDE. [Concomitant]
     Active Substance: ETOPOSIDE
     Indication: HODGKIN^S DISEASE
     Dosage: UNK (IVE REGIMEN AS SALVAGE CHEMOTHERAPY)
     Route: 065
     Dates: start: 201201, end: 201201
  24. BENDAMUSTINE [Concomitant]
     Active Substance: BENDAMUSTINE
     Indication: SALVAGE THERAPY
  25. DACARBAZINE. [Concomitant]
     Active Substance: DACARBAZINE
     Indication: HODGKIN^S DISEASE
     Dosage: UNK (ABVD REGIMEN)
     Route: 065
     Dates: start: 201102, end: 201102
  26. CYCLOSPORINE. [Concomitant]
     Active Substance: CYCLOSPORINE
     Indication: CHRONIC GRAFT VERSUS HOST DISEASE IN SKIN
  27. DEXAMETHASONE. [Concomitant]
     Active Substance: DEXAMETHASONE
     Indication: PAPILLARY THYROID CANCER
     Dosage: UNK (GDP REGIMEN)
     Route: 065
     Dates: start: 201705, end: 201705
  28. DEXAMETHASONE. [Concomitant]
     Active Substance: DEXAMETHASONE
     Indication: SALVAGE THERAPY
  29. EPIRUBICIN [Concomitant]
     Active Substance: EPIRUBICIN
     Indication: SALVAGE THERAPY
  30. GEMCITABINE. [Concomitant]
     Active Substance: GEMCITABINE
     Indication: PAPILLARY THYROID CANCER
     Dosage: UNK (GDP REGIMEN)
     Route: 065
     Dates: start: 201705, end: 201705
  31. ETOPOSIDE. [Concomitant]
     Active Substance: ETOPOSIDE
     Indication: SALVAGE THERAPY
  32. CYTARABINE. [Concomitant]
     Active Substance: CYTARABINE
     Indication: BONE MARROW CONDITIONING REGIMEN
     Dosage: UNK (BEAM REGIMEN)
     Route: 065
     Dates: start: 201209, end: 201209
  33. HYDROXYCHLOROQUINE [Suspect]
     Active Substance: HYDROXYCHLOROQUINE
     Indication: COVID-19 PNEUMONIA
     Dosage: UNK
     Route: 065
     Dates: start: 202004
  34. FAVIPIRAVIR [Suspect]
     Active Substance: FAVIPIRAVIR
     Indication: COVID-19
     Dosage: UNK
     Route: 065
     Dates: start: 202004
  35. IMMUNOGLOBULIN (IMMUNOGLOBULIN HUMAN NORMAL) [Suspect]
     Active Substance: HUMAN IMMUNOGLOBULIN G
     Indication: COVID-19 PNEUMONIA
     Dosage: 400 MILLIGRAM/KILOGRAM
     Route: 042
     Dates: start: 202004, end: 202004
  36. RITUXIMAB. [Concomitant]
     Active Substance: RITUXIMAB
     Indication: POST TRANSPLANT LYMPHOPROLIFERATIVE DISORDER
     Dosage: UNK (EIGHT DOSES OF WEEKLY RITUXIMAB)
     Route: 065
     Dates: start: 201811
  37. ETOPOSIDE. [Concomitant]
     Active Substance: ETOPOSIDE
     Indication: BONE MARROW CONDITIONING REGIMEN
     Dosage: UNK (CONDITIONING THERAPY AS A PART OF BEAM REGIMEN)
     Route: 065
     Dates: start: 201209, end: 201209
  38. CYCLOSPORINE. [Concomitant]
     Active Substance: CYCLOSPORINE
     Indication: PROPHYLAXIS AGAINST GRAFT VERSUS HOST DISEASE
     Dosage: UNK
     Route: 065
     Dates: start: 2018
  39. BRENTUXIMAB [Concomitant]
     Active Substance: BRENTUXIMAB VEDOTIN
     Indication: SALVAGE THERAPY
     Dosage: 1.8 MILLIGRAM/KILOGRAM (BRENTUXIMAB 1.8 MG/KG EVERY 3 WEEKS; COMPLETED THREE CYCLES OF BRENTUXIMAB)
     Route: 065
     Dates: start: 202001, end: 202003
  40. BLEOMYCIN [Concomitant]
     Active Substance: BLEOMYCIN SULFATE
     Indication: HODGKIN^S DISEASE
     Dosage: UNK (ABVD REGIMEN)
     Route: 065
     Dates: start: 201102, end: 201102
  41. CISPLATIN. [Concomitant]
     Active Substance: CISPLATIN
     Indication: SALVAGE THERAPY
  42. MELPHALAN. [Concomitant]
     Active Substance: MELPHALAN
     Dosage: UNK (FOR ALLOHCT)
     Route: 065
     Dates: start: 201803, end: 201803

REACTIONS (2)
  - Drug ineffective for unapproved indication [Fatal]
  - Multiple organ dysfunction syndrome [Fatal]

NARRATIVE: CASE EVENT DATE: 202004
